FAERS Safety Report 8546347-9 (Version None)
Quarter: 2012Q3

REPORT INFORMATION
  Report Type: 
  Country: None (occurrence: None)
  Receive Date: 20120727
  Receipt Date: 20111219
  Transmission Date: 20120928
  Serious: No
  Sender: FDA-Public Use
  Company Number: US-ASTRAZENECA-2011SE76736

PATIENT
  Sex: Female

DRUGS (2)
  1. SEROQUEL [Suspect]
     Dosage: DAILY
     Route: 048
     Dates: start: 20090101
  2. SEROQUEL [Suspect]
     Indication: BIPOLAR DISORDER
     Route: 048
     Dates: start: 20070101, end: 20090101

REACTIONS (2)
  - ADVERSE EVENT [None]
  - DISCOMFORT [None]
